FAERS Safety Report 21614063 (Version 1)
Quarter: 2022Q4

REPORT INFORMATION
  Report Type: Report from Study
  Country: GT (occurrence: GT)
  Receive Date: 20221118
  Receipt Date: 20221118
  Transmission Date: 20230112
  Serious: Yes (Life-Threatening, Other)
  Sender: FDA-Public Use
  Company Number: GT-002147023-NVSC2022GT259662

PATIENT
  Sex: Male

DRUGS (2)
  1. METFORMIN HYDROCHLORIDE\VILDAGLIPTIN [Suspect]
     Active Substance: METFORMIN HYDROCHLORIDE\VILDAGLIPTIN
     Indication: Diabetes mellitus
     Dosage: UNK (50/500MG) BID
     Route: 048
     Dates: start: 2020, end: 202210
  2. METFORMIN HYDROCHLORIDE\VILDAGLIPTIN [Suspect]
     Active Substance: METFORMIN HYDROCHLORIDE\VILDAGLIPTIN
     Dosage: UNK, (50/1000MG ) QD
     Route: 048
     Dates: start: 202210

REACTIONS (6)
  - Feeling abnormal [Unknown]
  - Accident [Unknown]
  - Visual impairment [Unknown]
  - Blood glucose increased [Unknown]
  - Dizziness [Unknown]
  - Drug ineffective [Unknown]
